FAERS Safety Report 7312649-7 (Version None)
Quarter: 2011Q1

REPORT INFORMATION
  Report Type: 
  Country: None (occurrence: None)
  Receive Date: 20110224
  Receipt Date: 20101123
  Transmission Date: 20110831
  Serious: No
  Sender: FDA-Public Use
  Company Number: US-MYLANLABS-2010S1021525

PATIENT
  Age: 69 Year
  Sex: Female

DRUGS (2)
  1. LISINOPRIL [Concomitant]
     Route: 048
  2. LANSOPRAZOLE [Suspect]
     Route: 048
     Dates: start: 20100115, end: 20101001

REACTIONS (1)
  - DRUG EFFECT DECREASED [None]
